FAERS Safety Report 7425610-9 (Version None)
Quarter: 2011Q2

REPORT INFORMATION
  Report Type: 
  Country: None (occurrence: None)
  Receive Date: 20110418
  Receipt Date: 20110418
  Transmission Date: 20111010
  Serious: Yes (Hospitalization)
  Sender: FDA-Public Use
  Company Number: None

PATIENT
  Age: 60 Year
  Sex: Male
  Weight: 72.6 kg

DRUGS (1)
  1. WARFARIN SODIUM [Suspect]
     Indication: DEEP VEIN THROMBOSIS
     Dosage: 7.5 MG EVERY DAY PO
     Route: 048
     Dates: start: 20100823, end: 20101019

REACTIONS (9)
  - GASTRIC ULCER [None]
  - LYMPHOPROLIFERATIVE DISORDER [None]
  - DUODENAL ULCER [None]
  - ASTHENIA [None]
  - GASTRIC HAEMORRHAGE [None]
  - INTERNATIONAL NORMALISED RATIO INCREASED [None]
  - GASTRITIS EROSIVE [None]
  - HAEMOGLOBIN DECREASED [None]
  - HYPOTENSION [None]
